FAERS Safety Report 7469347-9 (Version None)
Quarter: 2011Q2

REPORT INFORMATION
  Report Type: 
  Country: None (occurrence: None)
  Receive Date: 20110510
  Receipt Date: 20110425
  Transmission Date: 20111010
  Serious: Yes (Hospitalization)
  Sender: FDA-Public Use
  Company Number: US-ELI_LILLY_AND_COMPANY-US201104007199

PATIENT
  Sex: Female

DRUGS (1)
  1. FORTEO [Suspect]
     Indication: OSTEOPOROSIS
     Dosage: 20 UG, QD
     Route: 065
     Dates: start: 20110303

REACTIONS (7)
  - SENSATION OF PRESSURE [None]
  - ARTHRALGIA [None]
  - DYSPNOEA [None]
  - WEIGHT INCREASED [None]
  - DEPRESSION [None]
  - BACK PAIN [None]
  - ASTHMA [None]
